FAERS Safety Report 5019807-5 (Version None)
Quarter: 2006Q2

REPORT INFORMATION
  Report Type: 
  Country: None (occurrence: None)
  Receive Date: 20060605
  Receipt Date: 20060605
  Transmission Date: 20061013
  Serious: Yes (Hospitalization)
  Sender: FDA-Public Use
  Company Number: None

PATIENT
  Age: 66 Year
  Sex: Male
  Weight: 105.2345 kg

DRUGS (9)
  1. PROCRIT [Suspect]
     Indication: ANAEMIA
     Dosage: 80,000 IU SQ WKLY
     Route: 058
     Dates: start: 20060417, end: 20060501
  2. CYTOXAN [Suspect]
     Indication: BREAST CANCER METASTATIC
     Dosage: 500 MG/M2 IV Q 3 WKS
     Route: 042
     Dates: start: 20060405, end: 20060522
  3. ADRIAMYCIN PFS [Suspect]
     Indication: BREAST CANCER METASTATIC
     Dosage: 50 MG/M2 IV Q 3 WKS
     Route: 042
     Dates: start: 20060405, end: 20060522
  4. ABRAXANE [Suspect]
     Indication: BREAST CANCER METASTATIC
     Dosage: 175 MG/M2 IV Q3 WKS
     Route: 042
     Dates: start: 20060407, end: 20060525
  5. ASPIRIN [Concomitant]
  6. ATORVASTATIN CAL [Concomitant]
  7. LORTAB [Concomitant]
  8. LISINOPRIL [Concomitant]
  9. LETROZOLE [Concomitant]

REACTIONS (1)
  - THROMBOCYTOPENIA [None]
